FAERS Safety Report 10227110 (Version 1)
Quarter: 2014Q2

REPORT INFORMATION
  Report Type: Spontaneous
  Country: CA (occurrence: None)
  Receive Date: 20140606
  Receipt Date: 20140606
  Transmission Date: 20141212
  Serious: Yes (Other)
  Sender: FDA-Public Use
  Company Number: 2014CA003273

PATIENT
  Age: 84 Year
  Sex: Male

DRUGS (6)
  1. ELIGARD [Suspect]
     Indication: PROSTATE CANCER
     Dosage: 22.5 MG, Q3MONTHS, SUBCUTANEOUS
     Route: 058
     Dates: start: 20120803
  2. ASPARIN (ACETYLSALICYLATE LYSINE) [Concomitant]
  3. AMLODIPINE [Concomitant]
  4. LIPITOR (ATORVASTATIN CALCIUM) [Concomitant]
  5. PLAVIX (CLOPIDOGREL BISULFATE) (CLOPIDOGREL BISULFATE) [Concomitant]
  6. OLMETEC (OLMESARTAN MEDOXOMIL) [Concomitant]

REACTIONS (4)
  - Rectal haemorrhage [None]
  - Constipation [None]
  - Thrombosis [None]
  - Radiation injury [None]
